FAERS Safety Report 5832373-7 (Version None)
Quarter: 2008Q3

REPORT INFORMATION
  Report Type: 
  Country: None (occurrence: None)
  Receive Date: 20080804
  Receipt Date: 20080725
  Transmission Date: 20090109
  Serious: Yes (Hospitalization, Disabling)
  Sender: FDA-Public Use
  Company Number: US-MERCK-0805USA00715

PATIENT
  Age: 71 Year
  Sex: Female
  Weight: 66 kg

DRUGS (6)
  1. FOSAMAX [Suspect]
     Indication: OSTEOPOROSIS
     Route: 048
     Dates: start: 20021101, end: 20070307
  2. FOSAMAX [Suspect]
     Route: 048
     Dates: start: 19970101, end: 20021101
  3. FOSAMAX [Suspect]
     Route: 048
     Dates: start: 20080201
  4. FOSAMAX [Suspect]
     Indication: OSTEOPENIA
     Route: 048
     Dates: start: 20021101, end: 20070307
  5. FOSAMAX [Suspect]
     Route: 048
     Dates: start: 19970101, end: 20021101
  6. FOSAMAX [Suspect]
     Route: 048
     Dates: start: 20080201

REACTIONS (18)
  - ANXIETY [None]
  - ATROPHIC VULVOVAGINITIS [None]
  - BACK DISORDER [None]
  - BONE LESION [None]
  - BONE PAIN [None]
  - CHEILITIS [None]
  - COUGH [None]
  - DEPRESSION [None]
  - DRY MOUTH [None]
  - GASTRIC ULCER [None]
  - GASTRIC ULCER PERFORATION [None]
  - JAW DISORDER [None]
  - ORAL DISORDER [None]
  - ORAL FUNGAL INFECTION [None]
  - OSTEONECROSIS [None]
  - SUBCUTANEOUS ABSCESS [None]
  - ULCER [None]
  - WEIGHT DECREASED [None]
